FAERS Safety Report 16264154 (Version 7)
Quarter: 2019Q2

REPORT INFORMATION
  Report Type: Report from Study
  Country: None (occurrence: NL)
  Receive Date: 20190502
  Receipt Date: 20190610
  Transmission Date: 20190711
  Serious: Yes (Hospitalization)
  Sender: FDA-Public Use
  Company Number: NL-ABBVIE-19S-114-2750614-00

PATIENT
  Age: 67 Year
  Sex: Female

DRUGS (4)
  1. LEVODOPA/CARBIDOPA RETARD [Concomitant]
     Active Substance: CARBIDOPA\LEVODOPA
     Indication: PRODUCT USED FOR UNKNOWN INDICATION
     Route: 048
  2. DUODOPA [Suspect]
     Active Substance: CARBIDOPA\LEVODOPA
     Indication: PARKINSON^S DISEASE
     Dosage: MD 3.8?CD 2.2?ED 0.7
     Route: 050
     Dates: start: 20181008
  3. CLYSTER [Concomitant]
     Active Substance: GLYCERIN\THYMOL
     Indication: PRODUCT USED FOR UNKNOWN INDICATION
  4. MACROGOL SACHET [Concomitant]
     Indication: PRODUCT USED FOR UNKNOWN INDICATION

REACTIONS (24)
  - Freezing phenomenon [Not Recovered/Not Resolved]
  - Arthralgia [Not Recovered/Not Resolved]
  - Fatigue [Not Recovered/Not Resolved]
  - Psychiatric symptom [Not Recovered/Not Resolved]
  - Parkinson^s disease [Not Recovered/Not Resolved]
  - Dysstasia [Not Recovered/Not Resolved]
  - Bradykinesia [Not Recovered/Not Resolved]
  - Underdose [Not Recovered/Not Resolved]
  - Defaecation disorder [Recovered/Resolved]
  - Weight increased [Unknown]
  - Musculoskeletal stiffness [Not Recovered/Not Resolved]
  - Arrhythmia [Recovering/Resolving]
  - Malaise [Unknown]
  - Hallucination [Recovering/Resolving]
  - Depressed mood [Not Recovered/Not Resolved]
  - Parkinsonian gait [Not Recovered/Not Resolved]
  - Tremor [Not Recovered/Not Resolved]
  - Diarrhoea [Not Recovered/Not Resolved]
  - Affective disorder [Unknown]
  - Abdominal pain [Recovering/Resolving]
  - Joint dislocation [Recovered/Resolved]
  - Therapeutic product effect incomplete [Recovered/Resolved]
  - Dyskinesia [Not Recovered/Not Resolved]
  - Eating disorder [Recovering/Resolving]

NARRATIVE: CASE EVENT DATE: 20190416
